FAERS Safety Report 6757784-7 (Version None)
Quarter: 2010Q2

REPORT INFORMATION
  Report Type: 
  Country: None (occurrence: None)
  Receive Date: 20100604
  Receipt Date: 20100604
  Transmission Date: 20101027
  Serious: Yes (Hospitalization, Disabling)
  Sender: FDA-Public Use
  Company Number: None

PATIENT
  Age: 39 Year
  Sex: Female
  Weight: 51.2565 kg

DRUGS (1)
  1. PROPOFOL [Suspect]
     Indication: SEDATIVE THERAPY
     Dosage: 140 MG 2 X OVER 15 MINUTE IV BOLUS
     Route: 040
     Dates: start: 20100528, end: 20100528

REACTIONS (6)
  - CELLULITIS [None]
  - INFUSION SITE ERYTHEMA [None]
  - INJECTED LIMB MOBILITY DECREASED [None]
  - MUSCULOSKELETAL STIFFNESS [None]
  - PAIN IN EXTREMITY [None]
  - PRODUCT QUALITY ISSUE [None]
